FAERS Safety Report 5875849-9 (Version None)
Quarter: 2008Q3

REPORT INFORMATION
  Report Type: 
  Country: None (occurrence: None)
  Receive Date: 20080909
  Receipt Date: 20080829
  Transmission Date: 20090109
  Serious: Yes (Other)
  Sender: FDA-Public Use
  Company Number: SE-PFIZER INC-2008073038

PATIENT
  Sex: Male

DRUGS (1)
  1. SALAZOPYRIN [Suspect]
     Indication: PSORIATIC ARTHROPATHY
     Dates: start: 20070201, end: 20070601

REACTIONS (4)
  - AMYOTROPHIC LATERAL SCLEROSIS [None]
  - DEPRESSION [None]
  - DYSARTHRIA [None]
  - ENCEPHALOPATHY [None]
